FAERS Safety Report 11977201 (Version 1)
Quarter: 2016Q1

REPORT INFORMATION
  Report Type: Spontaneous
  Country: US (occurrence: None)
  Receive Date: 20160128
  Receipt Date: 20160128
  Transmission Date: 20160526
  Serious: Yes (Life-Threatening, Hospitalization, Disabling, Other)
  Sender: FDA-Public Use
  Company Number: None

PATIENT
  Age: 58 Year
  Sex: Female
  Weight: 43.09 kg

DRUGS (17)
  1. VALTREX [Concomitant]
     Active Substance: VALACYCLOVIR HYDROCHLORIDE
  2. VITAMIN D [Concomitant]
     Active Substance: CHOLECALCIFEROL
  3. MESTINON [Concomitant]
     Active Substance: PYRIDOSTIGMINE BROMIDE
  4. FOSAMAX [Concomitant]
     Active Substance: ALENDRONATE SODIUM
  5. VAGIFEM [Concomitant]
     Active Substance: ESTRADIOL
  6. COENZYME Q10 [Concomitant]
     Active Substance: UBIDECARENONE
  7. TIROSINT [Concomitant]
     Active Substance: LEVOTHYROXINE SODIUM
  8. PROLIA [Concomitant]
     Active Substance: DENOSUMAB
  9. ALBUTEROL. [Concomitant]
     Active Substance: ALBUTEROL
  10. B2 [Concomitant]
  11. B6 [Concomitant]
     Active Substance: PYRIDOXINE HYDROCHLORIDE
  12. SYNTHROID [Suspect]
     Active Substance: LEVOTHYROXINE SODIUM
     Indication: HYPOTHYROIDISM
     Route: 048
     Dates: start: 20020717, end: 20021104
  13. ESTRING [Concomitant]
     Active Substance: ESTRADIOL
  14. MULTI VITAMIN [Concomitant]
     Active Substance: VITAMINS
  15. CALCIUM [Concomitant]
     Active Substance: CALCIUM
  16. ALPHA LIPOIC ACID [Concomitant]
     Active Substance: .ALPHA.-LIPOIC ACID
  17. CREATINE MONOHYDRATE [Concomitant]
     Active Substance: CREATINE MONOHYDRATE

REACTIONS (3)
  - Drug prescribing error [None]
  - Incorrect dose administered [None]
  - Hypersensitivity [None]

NARRATIVE: CASE EVENT DATE: 20020712
